FAERS Safety Report 7674912 (Version 10)
Quarter: 2017Q3

REPORT INFORMATION
  Report Type: Spontaneous
  Country: US (occurrence: US)
  Receive Date: 20101118
  Receipt Date: 20170710
  Transmission Date: 20171128
  Serious: Yes (Hospitalization, Disabling, Other)
  Sender: FDA-Public Use
  Company Number: US-009507513-1011USA01580

PATIENT
  Sex: Female
  Weight: 54 kg

DRUGS (3)
  1. FOSAMAX [Suspect]
     Active Substance: ALENDRONATE SODIUM
     Dosage: 70 MG, QW
     Route: 048
     Dates: start: 20080725, end: 2009
  2. MK-9355 [Concomitant]
     Active Substance: UNSPECIFIED INGREDIENT
     Indication: NEPHROLITHIASIS
     Dates: start: 1989
  3. FOSAMAX [Suspect]
     Active Substance: ALENDRONATE SODIUM
     Dosage: 70 MG, QW
     Route: 048
     Dates: start: 199811, end: 200806

REACTIONS (49)
  - Fall [Unknown]
  - Hydronephrosis [Recovered/Resolved]
  - Contusion [Unknown]
  - Joint swelling [Unknown]
  - Fall [Unknown]
  - Exostosis [Unknown]
  - Photopsia [Unknown]
  - Gastrointestinal disorder [Unknown]
  - Subarachnoid haemorrhage [Recovered/Resolved]
  - Anaemia [Unknown]
  - Femur fracture [Unknown]
  - Intervertebral disc degeneration [Unknown]
  - Ureterolithiasis [Recovered/Resolved]
  - Spinal column stenosis [Unknown]
  - Dysphagia [Unknown]
  - Ruptured cerebral aneurysm [Recovered/Resolved]
  - Dizziness [Unknown]
  - Mycotic allergy [Unknown]
  - Body height decreased [Unknown]
  - Cyst [Unknown]
  - Osteoporosis [Unknown]
  - Asthma [Unknown]
  - Femur fracture [Unknown]
  - Arthritis [Unknown]
  - Muscle spasms [Unknown]
  - Low turnover osteopathy [Unknown]
  - Allergy to animal [Unknown]
  - Hypokalaemia [Recovered/Resolved]
  - Spinal osteoarthritis [Unknown]
  - Bursitis [Unknown]
  - Gastrooesophageal reflux disease [Unknown]
  - Bone disorder [Unknown]
  - Haemorrhagic anaemia [Recovered/Resolved]
  - Hypotension [Unknown]
  - Hydrocephalus [Recovered/Resolved]
  - Femur fracture [Recovered/Resolved]
  - Fatigue [Unknown]
  - Hiatus hernia [Unknown]
  - Spondylolisthesis [Unknown]
  - Pneumonitis [Unknown]
  - Urinary tract infection [Recovered/Resolved]
  - Limb discomfort [Unknown]
  - Sinus tachycardia [Unknown]
  - Lactose intolerance [Unknown]
  - Seasonal allergy [Unknown]
  - Osteoarthritis [Unknown]
  - Neuropathy peripheral [Unknown]
  - Cervical radiculopathy [Unknown]
  - Hypersensitivity [Unknown]

NARRATIVE: CASE EVENT DATE: 200312
